FAERS Safety Report 8190892-5 (Version None)
Quarter: 2012Q1

REPORT INFORMATION
  Report Type: 
  Country: None (occurrence: None)
  Receive Date: 20120307
  Receipt Date: 20120228
  Transmission Date: 20120608
  Serious: Yes (Hospitalization, Other)
  Sender: FDA-Public Use
  Company Number: US-BAYER-2011-049297

PATIENT
  Age: 46 Year
  Sex: Female
  Weight: 130 kg

DRUGS (11)
  1. DIOVAN [Concomitant]
     Dosage: UNK
     Dates: start: 20090701
  2. ASCORBIC ACID [Concomitant]
     Dosage: UNK
     Dates: start: 20090615, end: 20090705
  3. YAZ [Suspect]
     Indication: UTERINE LEIOMYOMA
  4. MULTI-VITAMIN [Concomitant]
     Dosage: UNK
     Dates: start: 20090615
  5. ALL OTHER THERAPEUTIC PRODUCTS [Concomitant]
     Dosage: UNK
     Dates: start: 20090615, end: 20090705
  6. ADVAIR DISKUS 100/50 [Concomitant]
     Dosage: UNK
     Dates: start: 20090311
  7. MIDRIN [Concomitant]
     Indication: MIGRAINE
     Dosage: UNK
     Dates: start: 20090601
  8. AZITHROMYCIN [Concomitant]
     Dosage: UNK
     Dates: start: 20090610, end: 20090615
  9. OMEPRAZOLE [Concomitant]
     Dosage: UNK
     Dates: start: 20081201
  10. ALL OTHER THERAPEUTIC PRODUCTS [Concomitant]
     Dosage: UNK
     Dates: start: 20090615, end: 20090705
  11. YAZ [Suspect]
     Indication: UTERINE CYST
     Dosage: UNK
     Dates: start: 20090501, end: 20090705

REACTIONS (16)
  - PAIN [None]
  - PULMONARY EMBOLISM [None]
  - GENERAL PHYSICAL HEALTH DETERIORATION [None]
  - THROMBOPHLEBITIS SUPERFICIAL [None]
  - EMOTIONAL DISTRESS [None]
  - PAIN IN EXTREMITY [None]
  - TACHYCARDIA [None]
  - THROMBOSIS [None]
  - CHEST PAIN [None]
  - DEPRESSION [None]
  - INJURY [None]
  - ANXIETY [None]
  - DYSPNOEA [None]
  - OEDEMA PERIPHERAL [None]
  - FEAR [None]
  - INSOMNIA [None]
